FAERS Safety Report 8621923-3 (Version None)
Quarter: 2012Q3

REPORT INFORMATION
  Report Type: 
  Country: None (occurrence: None)
  Receive Date: 20120822
  Receipt Date: 20120822
  Transmission Date: 20120928
  Serious: No
  Sender: FDA-Public Use
  Company Number: None

PATIENT
  Sex: Female
  Weight: 61.2356 kg

DRUGS (8)
  1. QUETIAPINE 100MG LUPIN [Suspect]
     Indication: DEPRESSION
     Dosage: 1 ONCE PO
     Route: 048
     Dates: start: 20120601, end: 20120819
  2. VALIUM [Concomitant]
  3. POTASSIUM [Concomitant]
  4. BENADRYL [Concomitant]
  5. VITAMIN TAB [Concomitant]
  6. HYDROCODONE [Concomitant]
  7. LEVOTHYROXINE SODIUM [Concomitant]
  8. QUINAPRIL [Concomitant]

REACTIONS (10)
  - SOMNOLENCE [None]
  - INSOMNIA [None]
  - ABDOMINAL DISCOMFORT [None]
  - DIZZINESS [None]
  - VISUAL IMPAIRMENT [None]
  - FATIGUE [None]
  - ROAD TRAFFIC ACCIDENT [None]
  - CONSTIPATION [None]
  - NAUSEA [None]
  - OROPHARYNGEAL PAIN [None]
